FAERS Safety Report 9657749 (Version 1)
Quarter: 2013Q4

REPORT INFORMATION
  Report Type: Spontaneous
  Country: JO (occurrence: None)
  Receive Date: 20131029
  Receipt Date: 20131029
  Transmission Date: 20140711
  Serious: Yes (Hospitalization)
  Sender: FDA-Public Use
  Company Number: 2013PL000176

PATIENT
  Age: 13 Year
  Sex: Male

DRUGS (1)
  1. MERCAPTOPURINE [Suspect]
     Indication: DRUG THERAPY
     Dosage: UNK?
     Dates: start: 2010, end: 2010

REACTIONS (4)
  - Pancreatitis acute [None]
  - Ascites [None]
  - Pancreatic enlargement [None]
  - Pancreatitis necrotising [None]
